FAERS Safety Report 10917423 (Version 3)
Quarter: 2015Q2

REPORT INFORMATION
  Report Type: Spontaneous
  Country: US (occurrence: US)
  Receive Date: 20150316
  Receipt Date: 20150616
  Transmission Date: 20150821
  Serious: Yes (Hospitalization, Other)
  Sender: FDA-Public Use
  Company Number: US-009507513-1110USA00176

PATIENT
  Sex: Female
  Weight: 72.56 kg

DRUGS (3)
  1. ALENDRONATE SODIUM. [Suspect]
     Active Substance: ALENDRONATE SODIUM
     Indication: OSTEOPOROSIS
     Dosage: 70 MG, UNK
     Route: 048
     Dates: start: 20080307, end: 20100713
  2. FOSAMAX PLUS D [Suspect]
     Active Substance: ALENDRONATE SODIUM\CHOLECALCIFEROL
     Indication: BONE DENSITY DECREASED
     Dosage: UNK
     Route: 048
  3. FOSAMAX [Suspect]
     Active Substance: ALENDRONATE SODIUM
     Indication: OSTEOPOROSIS
     Dosage: 70 MG, UNK
     Route: 048
     Dates: start: 20011001, end: 20080205

REACTIONS (22)
  - Femur fracture [Recovered/Resolved with Sequelae]
  - Intramedullary rod insertion [Unknown]
  - Medical device removal [Recovered/Resolved with Sequelae]
  - Impaired healing [Unknown]
  - Hypercholesterolaemia [Unknown]
  - Femur fracture [Recovered/Resolved with Sequelae]
  - Femur fracture [Unknown]
  - Surgical failure [Unknown]
  - Foot operation [Unknown]
  - Shoulder arthroplasty [Unknown]
  - Gastrooesophageal reflux disease [Unknown]
  - Device dislocation [Recovered/Resolved with Sequelae]
  - Chronic obstructive pulmonary disease [Unknown]
  - Hypertension [Unknown]
  - Diarrhoea [Recovered/Resolved]
  - Intramedullary rod insertion [Unknown]
  - Osteoarthritis [Unknown]
  - Nausea [Unknown]
  - Anaemia postoperative [Recovering/Resolving]
  - Fracture malunion [Recovered/Resolved with Sequelae]
  - Spinal osteoarthritis [Unknown]
  - Limb asymmetry [Unknown]

NARRATIVE: CASE EVENT DATE: 20030212
